FAERS Safety Report 7032967-X (Version None)
Quarter: 2010Q4

REPORT INFORMATION
  Report Type: 
  Country: None (occurrence: None)
  Receive Date: 20101007
  Receipt Date: 20101005
  Transmission Date: 20110411
  Serious: Yes (Hospitalization, Other)
  Sender: FDA-Public Use
  Company Number: GB-AMGEN-KDC434985

PATIENT
  Sex: Male

DRUGS (7)
  1. VECTIBIX [Suspect]
     Indication: GASTROOESOPHAGEAL CANCER
     Dates: start: 20100625, end: 20100627
  2. EPIRUBICIN [Suspect]
     Dates: start: 20100625, end: 20100627
  3. OXALIPLATIN [Suspect]
     Dates: start: 20100625, end: 20100627
  4. CAPECITABINE [Suspect]
     Dates: start: 20100625, end: 20100627
  5. NULYTELY [Concomitant]
     Dates: start: 20100528, end: 20100715
  6. SOLPADOL [Concomitant]
     Dates: start: 20100528, end: 20100702
  7. ZIMOVANE [Concomitant]
     Dates: start: 20100528, end: 20100729

REACTIONS (5)
  - DIARRHOEA [None]
  - EMBOLISM ARTERIAL [None]
  - FEBRILE NEUTROPENIA [None]
  - THROMBOSIS [None]
  - VASCULAR ACCESS COMPLICATION [None]
